FAERS Safety Report 15164721 (Version 1)
Quarter: 2018Q3

REPORT INFORMATION
  Report Type: Spontaneous
  Country: US (occurrence: US)
  Receive Date: 20180719
  Receipt Date: 20180719
  Transmission Date: 20181010
  Serious: Yes (Other)
  Sender: FDA-Public Use
  Company Number: US-SA-2018SA114574

PATIENT
  Age: 47 Year
  Sex: Female
  Weight: 103.87 kg

DRUGS (4)
  1. PARAPLATIN [Concomitant]
     Active Substance: CARBOPLATIN
  2. TAXOTERE [Suspect]
     Active Substance: DOCETAXEL
     Indication: BREAST CANCER
     Dosage: 70 MG,QW
     Route: 051
     Dates: start: 20090827, end: 20090827
  3. TAXOTERE [Suspect]
     Active Substance: DOCETAXEL
     Dosage: 70 MG,QW
     Route: 051
     Dates: start: 20091111, end: 20091111
  4. ADRIAMYCIN [DOXORUBICIN] [Concomitant]

REACTIONS (2)
  - Psychological trauma [Unknown]
  - Alopecia [Recovering/Resolving]

NARRATIVE: CASE EVENT DATE: 201005
